FAERS Safety Report 8565348-8 (Version None)
Quarter: 2012Q3

REPORT INFORMATION
  Report Type: 
  Country: None (occurrence: None)
  Receive Date: 20120803
  Receipt Date: 20120802
  Transmission Date: 20120928
  Serious: Yes (Hospitalization)
  Sender: FDA-Public Use
  Company Number: CN-ROCHE-1096847

PATIENT

DRUGS (1)
  1. ROCEPHIN [Suspect]
     Indication: LUNG INFECTION

REACTIONS (1)
  - FUNGAL INFECTION [None]
